FAERS Safety Report 5163711-9 (Version None)
Quarter: 2006Q4

REPORT INFORMATION
  Report Type: 
  Country: None (occurrence: None)
  Receive Date: 20061204
  Receipt Date: 20060103
  Transmission Date: 20070319
  Serious: Yes (Life-Threatening, Hospitalization)
  Sender: FDA-Public Use
  Company Number: FR-GLAXOSMITHKLINE-B0405473A

PATIENT
  Age: 47 Year
  Sex: Female
  Weight: 56 kg

DRUGS (12)
  1. AUGMENTIN '125' [Suspect]
     Indication: TRACHEITIS
     Route: 042
     Dates: start: 20051022, end: 20051023
  2. AUGMENTIN '125' [Suspect]
     Indication: TRACHEITIS
     Dosage: 1SAC SINGLE DOSE
     Route: 048
     Dates: start: 20051021, end: 20051021
  3. NEXIUM [Suspect]
     Route: 048
     Dates: start: 20051019, end: 20051023
  4. FLAGYL [Concomitant]
     Route: 065
     Dates: start: 20051024, end: 20051025
  5. TAZOCILLINE [Concomitant]
     Indication: SEPSIS SYNDROME
     Route: 065
     Dates: start: 20051025, end: 20051026
  6. AMIKLIN [Concomitant]
     Indication: SEPSIS SYNDROME
     Route: 065
     Dates: start: 20051025, end: 20051026
  7. CIPROFLOXACIN [Concomitant]
     Indication: ALVEOLITIS
     Route: 065
     Dates: start: 20051026
  8. OXYGEN [Concomitant]
     Indication: OXYGEN SATURATION DECREASED
     Route: 055
     Dates: start: 20051026
  9. ZYVOX [Concomitant]
     Indication: SUPERINFECTION LUNG
     Route: 065
  10. SOLU-MEDROL [Concomitant]
     Route: 065
  11. URSOLVAN [Concomitant]
     Indication: BILE DUCT OBSTRUCTION
     Dosage: 800MG PER DAY
     Route: 048
     Dates: start: 20021114
  12. ROCEPHIN [Concomitant]
     Route: 065
     Dates: start: 20051024, end: 20051025

REACTIONS (18)
  - ABDOMINAL PAIN UPPER [None]
  - ALVEOLITIS [None]
  - AUTOIMMUNE DISORDER [None]
  - BLOOD BILIRUBIN INCREASED [None]
  - CYTOLYTIC HEPATITIS [None]
  - HEPATITIS CHOLESTATIC [None]
  - HEPATOCELLULAR DAMAGE [None]
  - HYPOXIA [None]
  - JAUNDICE [None]
  - LUNG DISORDER [None]
  - MALNUTRITION [None]
  - ODYNOPHAGIA [None]
  - PANCREATITIS ACUTE [None]
  - PERITONEAL EFFUSION [None]
  - PORTAL HYPERTENSION [None]
  - PYREXIA [None]
  - SEPSIS SYNDROME [None]
  - WEIGHT DECREASED [None]
